FAERS Safety Report 5643838-5 (Version None)
Quarter: 2008Q1

REPORT INFORMATION
  Report Type: 
  Country: None (occurrence: None)
  Receive Date: 20080228
  Receipt Date: 20080221
  Transmission Date: 20080703
  Serious: Yes (Other)
  Sender: FDA-Public Use
  Company Number: US-GILEAD-2007-0013177

PATIENT
  Sex: Male
  Weight: 153.45 kg

DRUGS (4)
  1. ATRIPLA [Suspect]
     Indication: HIV INFECTION
     Route: 048
     Dates: start: 20060801
  2. ATRIPLA [Suspect]
     Indication: ACQUIRED IMMUNODEFICIENCY SYNDROME
  3. FLUOCININIDE [Concomitant]
     Indication: RASH
     Route: 061
     Dates: start: 20061031
  4. LAC-HYDRIN [Concomitant]
     Indication: RASH
     Route: 061
     Dates: start: 20060725

REACTIONS (1)
  - NEPHROLITHIASIS [None]
